FAERS Safety Report 7685630-6 (Version None)
Quarter: 2011Q3

REPORT INFORMATION
  Report Type: 
  Country: None (occurrence: None)
  Receive Date: 20110815
  Receipt Date: 20110815
  Transmission Date: 20111222
  Serious: Yes (Disabling)
  Sender: FDA-Public Use
  Company Number: None

PATIENT
  Sex: Female
  Weight: 117.9352 kg

DRUGS (2)
  1. CYMBALTA [Suspect]
     Indication: DEPRESSION
     Dosage: 60MG ONCE DAILY ORAL
     Route: 048
     Dates: start: 20100901
  2. CYMBALTA [Suspect]
     Indication: FIBROMYALGIA
     Dosage: 60MG ONCE DAILY ORAL
     Route: 048
     Dates: start: 20100901

REACTIONS (6)
  - MOOD SWINGS [None]
  - VERTIGO [None]
  - DRUG WITHDRAWAL SYNDROME [None]
  - NAUSEA [None]
  - DIZZINESS [None]
  - PARAESTHESIA [None]
